FAERS Safety Report 6416522-8 (Version None)
Quarter: 2009Q4

REPORT INFORMATION
  Report Type: 
  Country: None (occurrence: None)
  Receive Date: 20091027
  Receipt Date: 20091019
  Transmission Date: 20100525
  Serious: Yes (Other)
  Sender: FDA-Public Use
  Company Number: PHEH2009US14034

PATIENT
  Age: 63 Year
  Sex: Female

DRUGS (1)
  1. FEMARA [Suspect]
     Indication: BREAST CANCER
     Dosage: 2.5 UNK, QD
     Route: 048
     Dates: start: 20050101, end: 20090101

REACTIONS (1)
  - CUTANEOUS LUPUS ERYTHEMATOSUS [None]
